FAERS Safety Report 8911631 (Version 1)
Quarter: 2012Q4

REPORT INFORMATION
  Report Type: 
  Country: US (occurrence: US)
  Receive Date: 20121116
  Receipt Date: 20121116
  Transmission Date: 20130627
  Serious: Yes (Hospitalization)
  Sender: FDA-Public Use
  Company Number: US-009507513-1211USA004814

PATIENT
  Age: 62 Year
  Sex: Male

DRUGS (1)
  1. BCG LIVE [Suspect]
     Indication: BLADDER CANCER RECURRENT
     Dosage: UNK
     Dates: start: 2007, end: 2007

REACTIONS (3)
  - Bone marrow granuloma [Unknown]
  - Disseminated tuberculosis [Unknown]
  - Treatment failure [Unknown]
